FAERS Safety Report 5757247-1 (Version None)
Quarter: 2008Q2

REPORT INFORMATION
  Report Type: 
  Country: None (occurrence: None)
  Receive Date: 20080507
  Receipt Date: 20071102
  Transmission Date: 20081010
  Serious: Yes (Hospitalization)
  Sender: FDA-Public Use
  Company Number: 239484K07USA

PATIENT
  Age: 46 Year
  Sex: Female

DRUGS (7)
  1. REBIF [Suspect]
     Indication: MULTIPLE SCLEROSIS
     Dosage: 44 MCG, 3 IN 1 WEEKS, SUBCUTANEOUS
     Route: 058
     Dates: start: 20070626
  2. AMANTADINE (AMANTADINE/00055901/) [Concomitant]
  3. BACLOFEN [Concomitant]
  4. SEROQUEL [Concomitant]
  5. PROZAC [Concomitant]
  6. DEPAKOTE [Concomitant]
  7. DETROL [Concomitant]

REACTIONS (11)
  - ASTHENIA [None]
  - CYANOSIS [None]
  - DYSPHAGIA [None]
  - DYSPNOEA [None]
  - MULTIPLE SCLEROSIS RELAPSE [None]
  - NASOPHARYNGITIS [None]
  - PALPITATIONS [None]
  - PYREXIA [None]
  - TREMOR [None]
  - UPPER RESPIRATORY TRACT INFECTION [None]
  - VIRAL INFECTION [None]
